FAERS Safety Report 9214565 (Version 1)
Quarter: 2013Q2

REPORT INFORMATION
  Report Type: Report from Study
  Country: RO (occurrence: RO)
  Receive Date: 20130405
  Receipt Date: 20130405
  Transmission Date: 20140414
  Serious: Yes (Hospitalization)
  Sender: FDA-Public Use
  Company Number: PHHO2013RO004603

PATIENT
  Age: 50 Year
  Sex: Female
  Weight: 64.5 kg

DRUGS (1)
  1. SOM230 [Suspect]
     Indication: PITUITARY-DEPENDENT CUSHING^S SYNDROME
     Dosage: 0.6 MG, BID
     Route: 058
     Dates: start: 20130222, end: 20130327

REACTIONS (1)
  - Gastroduodenal ulcer [Recovering/Resolving]
